FAERS Safety Report 5715739-5 (Version None)
Quarter: 2008Q2

REPORT INFORMATION
  Report Type: 
  Country: None (occurrence: None)
  Receive Date: 20080422
  Receipt Date: 20080410
  Transmission Date: 20081010
  Serious: Yes (Hospitalization)
  Sender: FDA-Public Use
  Company Number: 056-C5013-07061603

PATIENT
  Age: 64 Year
  Sex: Male
  Weight: 84 kg

DRUGS (2)
  1. CC-5013 (LENALIDOMIDE) (CAPSULES) [Suspect]
     Indication: MYELODYSPLASTIC SYNDROME
     Dosage: 10 MG, DAILY, ORAL, 5 MG, DAILY, ORAL
     Route: 048
     Dates: start: 20070401, end: 20070617
  2. CC-5013 (LENALIDOMIDE) (CAPSULES) [Suspect]
     Indication: MYELODYSPLASTIC SYNDROME
     Dosage: 10 MG, DAILY, ORAL, 5 MG, DAILY, ORAL
     Route: 048
     Dates: start: 20070724

REACTIONS (3)
  - ARTHRALGIA [None]
  - ARTHRITIS [None]
  - FEBRILE BONE MARROW APLASIA [None]
